FAERS Safety Report 25707078 (Version 1)
Quarter: 2025Q3

REPORT INFORMATION
  Report Type: Spontaneous
  Country: US (occurrence: US)
  Receive Date: 20250820
  Receipt Date: 20250820
  Transmission Date: 20251020
  Serious: No
  Sender: BAYER HEALTHCARE LLC
  Company Number: US-BAYER-2025A110666

PATIENT
  Age: 86 Year
  Sex: Male

DRUGS (1)
  1. MIRALAX [Suspect]
     Active Substance: POLYETHYLENE GLYCOL 3350
     Indication: Prophylaxis
     Route: 048

REACTIONS (3)
  - Malaise [Recovering/Resolving]
  - Product taste abnormal [None]
  - Product odour abnormal [None]

NARRATIVE: CASE EVENT DATE: 20250818
